FAERS Safety Report 8459693-4 (Version None)
Quarter: 2012Q2

REPORT INFORMATION
  Report Type: 
  Country: None (occurrence: None)
  Receive Date: 20120622
  Receipt Date: 20120615
  Transmission Date: 20120825
  Serious: Yes (Hospitalization)
  Sender: FDA-Public Use
  Company Number: US-B.I. PHARMACEUTICALS,INC./RIDGEFIELD-2012-EU-03182GD

PATIENT
  Age: 85 Year
  Sex: Male

DRUGS (4)
  1. METOPROLOL SUCCINATE [Concomitant]
     Dosage: 50 MG
  2. ASPIRIN [Suspect]
     Indication: ANTICOAGULANT THERAPY
     Dosage: 325 MG
  3. DABIGATRAN [Suspect]
     Indication: ATRIAL FIBRILLATION
     Dosage: 300 MG
     Route: 048
  4. LISINOPRIL [Concomitant]
     Dosage: 10 MG

REACTIONS (8)
  - ANAEMIA [None]
  - DYSPNOEA [None]
  - GASTRITIS HAEMORRHAGIC [None]
  - ARRHYTHMIA [None]
  - HYPERHIDROSIS [None]
  - COAGULOPATHY [None]
  - RESPIRATORY RATE INCREASED [None]
  - DIZZINESS [None]
